FAERS Safety Report 8141291-3 (Version None)
Quarter: 2012Q1

REPORT INFORMATION
  Report Type: 
  Country: None (occurrence: None)
  Receive Date: 20120216
  Receipt Date: 20120206
  Transmission Date: 20120608
  Serious: Yes (Hospitalization)
  Sender: FDA-Public Use
  Company Number: DE-ROCHE-1002478

PATIENT
  Sex: Male

DRUGS (1)
  1. LUCENTIS [Suspect]
     Indication: AGE-RELATED MACULAR DEGENERATION
     Route: 050
     Dates: start: 20110501

REACTIONS (4)
  - MOTOR DYSFUNCTION [None]
  - APHASIA [None]
  - TRANSIENT ISCHAEMIC ATTACK [None]
  - DIZZINESS [None]
